FAERS Safety Report 6771316-9 (Version None)
Quarter: 2010Q2

REPORT INFORMATION
  Report Type: 
  Country: None (occurrence: None)
  Receive Date: 20100614
  Receipt Date: 20100107
  Transmission Date: 20101027
  Serious: Yes (Other)
  Sender: FDA-Public Use
  Company Number: 004387

PATIENT
  Sex: Female
  Weight: 64.4 kg

DRUGS (9)
  1. CERTOLIZUMAB PEGOL [Suspect]
     Indication: RHEUMATOID ARTHRITIS
     Dosage: 400 MG 1X/2 WEEKS, 3 DOSES SUBCUTANEOUS; 200 MG 1X/2 WEEKS SUBCUTANEOUS
     Route: 058
     Dates: start: 20090804, end: 20090101
  2. CERTOLIZUMAB PEGOL [Suspect]
     Indication: RHEUMATOID ARTHRITIS
     Dosage: 400 MG 1X/2 WEEKS, 3 DOSES SUBCUTANEOUS; 200 MG 1X/2 WEEKS SUBCUTANEOUS
     Route: 058
     Dates: start: 20090101, end: 20100105
  3. METHOTREXATE [Concomitant]
  4. PREDNISONE [Concomitant]
  5. FOLIC ACID [Concomitant]
  6. FOSAMAX [Concomitant]
  7. NORCO [Concomitant]
  8. MULTIVITAMIN /01229101/ [Concomitant]
  9. MAGNESIUM CARBONATE [Concomitant]

REACTIONS (2)
  - CARCINOID TUMOUR [None]
  - HAEMORRHOIDS [None]
